FAERS Safety Report 5162728-8 (Version None)
Quarter: 2006Q4

REPORT INFORMATION
  Report Type: 
  Country: None (occurrence: None)
  Receive Date: 20061201
  Receipt Date: 20060818
  Transmission Date: 20070319
  Serious: No
  Sender: FDA-Public Use
  Company Number: US-GLAXOSMITHKLINE-A0617319A

PATIENT
  Sex: Female

DRUGS (1)
  1. AUGMENTIN XR [Suspect]
     Dosage: .5TAB SINGLE DOSE
     Route: 048
     Dates: start: 20060817, end: 20060817

REACTIONS (2)
  - DYSPNOEA [None]
  - MEDICATION RESIDUE [None]
